FAERS Safety Report 6723547-1 (Version None)
Quarter: 2010Q2

REPORT INFORMATION
  Report Type: 
  Country: None (occurrence: None)
  Receive Date: 20100513
  Receipt Date: 20100503
  Transmission Date: 20101027
  Serious: Yes (Hospitalization, Other)
  Sender: FDA-Public Use
  Company Number: US-CELGENEUS-163-21880-10011131

PATIENT
  Sex: Female

DRUGS (2)
  1. REVLIMID [Suspect]
     Indication: MULTIPLE MYELOMA
     Route: 048
     Dates: start: 20100101, end: 20100301
  2. REVLIMID [Suspect]
     Route: 048
     Dates: start: 20090316

REACTIONS (3)
  - INFECTION [None]
  - NEUTROPENIA [None]
  - OSTEOMYELITIS [None]
